FAERS Safety Report 8381572-1 (Version None)
Quarter: 2012Q2

REPORT INFORMATION
  Report Type: 
  Country: None (occurrence: None)
  Receive Date: 20120523
  Receipt Date: 20120511
  Transmission Date: 20120825
  Serious: Yes (Hospitalization)
  Sender: FDA-Public Use
  Company Number: TR-MYLANLABS-2012S1010028

PATIENT
  Age: 54 Year
  Sex: Male

DRUGS (3)
  1. MODAFINIL [Interacting]
     Dosage: 200 MG/DAY IN THE 1ST WEEK OF TREATMENT; THEN INCREASED TO 400 MG/DAY
     Route: 065
  2. MODAFINIL [Interacting]
     Dosage: 400 MG/DAY
     Route: 065
  3. ESCITALOPRAM [Suspect]
     Indication: DEPRESSION
     Dosage: 20 MG/DAY
     Route: 065

REACTIONS (3)
  - PSYCHOTIC DISORDER [None]
  - DRUG INTERACTION [None]
  - MANIA [None]
